FAERS Safety Report 7604945-0 (Version None)
Quarter: 2011Q3

REPORT INFORMATION
  Report Type: 
  Country: None (occurrence: None)
  Receive Date: 20110713
  Receipt Date: 20110706
  Transmission Date: 20111222
  Serious: Yes (Hospitalization)
  Sender: FDA-Public Use
  Company Number: US-BIOGENIDEC-2011BI024843

PATIENT
  Age: 41 Year
  Sex: Female

DRUGS (1)
  1. TYSABRI [Suspect]
     Indication: MULTIPLE SCLEROSIS
     Route: 042
     Dates: start: 20090224

REACTIONS (4)
  - GALLBLADDER DISORDER [None]
  - OEDEMA PERIPHERAL [None]
  - ABDOMINAL PAIN UPPER [None]
  - JOINT SWELLING [None]
